FAERS Safety Report 10193153 (Version 1)
Quarter: 2014Q2

REPORT INFORMATION
  Report Type: Spontaneous
  Country: US (occurrence: US)
  Receive Date: 20140524
  Receipt Date: 20140524
  Transmission Date: 20141212
  Serious: No
  Sender: FDA-Public Use
  Company Number: US-SA-2013SA109471

PATIENT
  Age: 81 Year
  Sex: Male
  Weight: 92 kg

DRUGS (2)
  1. LANTUS [Suspect]
     Dosage: TAKEN FROM-10 PLUS YEARS
     Route: 051
  2. HUMALOG [Suspect]
     Dosage: TAKEN FROM-10 PLUS YEARS
     Route: 065

REACTIONS (1)
  - Gait disturbance [Unknown]
